FAERS Safety Report 8439962-4 (Version None)
Quarter: 2012Q2

REPORT INFORMATION
  Report Type: 
  Country: None (occurrence: None)
  Receive Date: 20120615
  Receipt Date: 20120604
  Transmission Date: 20120825
  Serious: Yes (Other)
  Sender: FDA-Public Use
  Company Number: US-BAYER-2012-056367

PATIENT
  Age: 85 Year
  Sex: Female
  Weight: 70.748 kg

DRUGS (3)
  1. ASPIRIN [Concomitant]
     Indication: BACK PAIN
     Dosage: 2 U, UNK
     Route: 048
     Dates: start: 20120501, end: 20120501
  2. ASPIRIN [Suspect]
     Indication: BACK PAIN
     Dosage: 2 U, QD
     Route: 048
     Dates: start: 20040101, end: 20120501
  3. HYDROCHLOROTHIAZIDE [Concomitant]

REACTIONS (2)
  - CHOKING [None]
  - FOREIGN BODY [None]
